FAERS Safety Report 7589385-5 (Version None)
Quarter: 2011Q3

REPORT INFORMATION
  Report Type: 
  Country: None (occurrence: None)
  Receive Date: 20110705
  Receipt Date: 20110622
  Transmission Date: 20111222
  Serious: Yes (Hospitalization)
  Sender: FDA-Public Use
  Company Number: KR-ELI_LILLY_AND_COMPANY-KR201107000030

PATIENT
  Sex: Female

DRUGS (2)
  1. ZYPREXA [Suspect]
     Dosage: 30 MG, UNK
     Route: 048
  2. ZYPREXA [Suspect]
     Dosage: 20 MG, UNK
     Route: 048

REACTIONS (4)
  - AGGRESSION [None]
  - CONVULSION [None]
  - CONDITION AGGRAVATED [None]
  - OVERDOSE [None]
